FAERS Safety Report 6254746-3 (Version None)
Quarter: 2009Q3

REPORT INFORMATION
  Report Type: 
  Country: None (occurrence: None)
  Receive Date: 20090702
  Receipt Date: 20090629
  Transmission Date: 20100115
  Serious: Yes (Death)
  Sender: FDA-Public Use
  Company Number: US-CELGENEUS-163-21880-09050989

PATIENT
  Sex: Male

DRUGS (6)
  1. REVLIMID [Suspect]
     Indication: MULTIPLE MYELOMA
     Route: 048
     Dates: start: 20090501, end: 20090511
  2. DUONEB [Concomitant]
     Route: 065
  3. ROXANOL [Concomitant]
     Indication: PAIN
     Route: 060
  4. ROXANOL [Concomitant]
  5. ZOFRAN [Concomitant]
     Indication: NAUSEA
     Route: 060
  6. ZOFRAN [Concomitant]
     Indication: VOMITING

REACTIONS (5)
  - ANAEMIA [None]
  - CARDIAC FAILURE CONGESTIVE [None]
  - HYPERKALAEMIA [None]
  - MULTIPLE MYELOMA [None]
  - RENAL FAILURE [None]
